FAERS Safety Report 21710108 (Version 1)
Quarter: 2022Q4

REPORT INFORMATION
  Report Type: Spontaneous
  Country: CA (occurrence: CA)
  Receive Date: 20221211
  Receipt Date: 20221211
  Transmission Date: 20230113
  Serious: Yes (Hospitalization)
  Sender: FDA-Public Use
  Company Number: CA-HISAMITSU PHARMACEUTICAL CO., INC.-2022-NOV-CA001160

PATIENT
  Age: 6 Decade
  Sex: Male

DRUGS (13)
  1. ASENAPINE [Suspect]
     Active Substance: ASENAPINE
     Indication: Product used for unknown indication
     Dosage: 5MG, TWICE DAILY
     Route: 065
  2. ASENAPINE [Suspect]
     Active Substance: ASENAPINE
     Dosage: 5MG, DAILY
     Route: 065
  3. PAROXETINE [Suspect]
     Active Substance: PAROXETINE
     Indication: Depression
     Dosage: 20MG, DAILY
     Route: 065
  4. PAROXETINE [Suspect]
     Active Substance: PAROXETINE
     Dosage: 10MG, DAILY
     Route: 065
  5. BENZTROPINE [Suspect]
     Active Substance: BENZTROPINE
     Indication: Cogwheel rigidity
     Dosage: 2 MG QAM
     Route: 065
  6. BENZTROPINE [Suspect]
     Active Substance: BENZTROPINE
     Indication: Head titubation
  7. DDAVP [Concomitant]
     Active Substance: DESMOPRESSIN ACETATE
     Indication: Diabetes insipidus
     Dosage: 240MG PO DAILY
     Route: 048
  8. BISOPROLOL [Concomitant]
     Active Substance: BISOPROLOL
     Indication: Product used for unknown indication
     Dosage: 5MG PO DAILY
     Route: 048
  9. DIVALPROEX SODIUM [Concomitant]
     Active Substance: DIVALPROEX SODIUM
     Indication: Product used for unknown indication
     Dosage: 500MG PO QAM AND 1000MG PO QHS
     Route: 048
  10. GABAPENTIN [Concomitant]
     Active Substance: GABAPENTIN
     Indication: Product used for unknown indication
     Dosage: 600 MG PO Q8H
     Route: 048
  11. MEDROXYPROGESTERONE [Concomitant]
     Active Substance: MEDROXYPROGESTERONE
     Indication: Product used for unknown indication
     Dosage: 200MG PO DAILY
     Route: 048
  12. QUINAPRIL [Concomitant]
     Active Substance: QUINAPRIL
     Indication: Product used for unknown indication
     Dosage: 20MG PO DAILY
     Route: 048
  13. ROSUVASTATIN [Concomitant]
     Active Substance: ROSUVASTATIN
     Indication: Product used for unknown indication
     Dosage: 200 MG PO DAILY
     Route: 048

REACTIONS (7)
  - Toxicity to various agents [Recovered/Resolved]
  - Nystagmus [Recovered/Resolved]
  - Dysmetria [Recovered/Resolved]
  - Delirium [Recovered/Resolved]
  - Clonus [Recovered/Resolved]
  - Cogwheel rigidity [Recovered/Resolved]
  - Head titubation [Not Recovered/Not Resolved]
